FAERS Safety Report 4961634-9 (Version None)
Quarter: 2006Q1

REPORT INFORMATION
  Report Type: 
  Country: None (occurrence: None)
  Receive Date: 20060329
  Receipt Date: 20060313
  Transmission Date: 20060701
  Serious: Yes (Hospitalization)
  Sender: FDA-Public Use
  Company Number: ACO_0219_2006

PATIENT
  Age: 30 Year
  Sex: Male
  Weight: 78 kg

DRUGS (6)
  1. TERNELIN [Suspect]
     Dosage: DF PO
     Route: 048
  2. ERISPAN [Suspect]
     Dosage: DF PO
     Route: 048
  3. TRYPTANOL [Suspect]
     Dosage: DF PO
     Route: 048
  4. DEPAS [Suspect]
     Indication: HEADACHE
     Dosage: DF PRN PO
     Route: 048
  5. DICKININ [Suspect]
     Dosage: DF PO
     Route: 048
  6. RIVOTRIL [Suspect]
     Dosage: DF

REACTIONS (5)
  - DRUG DEPENDENCE [None]
  - DRUG LEVEL INCREASED [None]
  - HEADACHE [None]
  - MULTIPLE DRUG OVERDOSE INTENTIONAL [None]
  - TREATMENT NONCOMPLIANCE [None]
